FAERS Safety Report 10241501 (Version 1)
Quarter: 2014Q2

REPORT INFORMATION
  Report Type: Spontaneous
  Country: NO (occurrence: None)
  Receive Date: 20140613
  Receipt Date: 20140613
  Transmission Date: 20141212
  Serious: Yes (Other)
  Sender: FDA-Public Use
  Company Number: FK201402306

PATIENT
  Age: 46 Year
  Sex: Female

DRUGS (11)
  1. CYTARABINE (MANUFACTURER UNKNOWN) (CYTARABINE) (CYTARABINE) [Suspect]
     Indication: PRECURSOR T-LYMPHOBLASTIC LYMPHOMA/LEUKAEMIA
     Route: 037
  2. G-CSF (GRANULOCYTE COLON STIMULATING FACTOR) (GRANULOCYTE COLON STIMULAING FACTOR) [Suspect]
     Indication: PERIPHERAL BLOOD STEM CELL APHERESIS
  3. CYCLOPHOSPHAMIDE (CYCLOPOSPHAMIDE) (CYCLOPHOSPHAMIDE) [Suspect]
     Indication: PRECURSOR T-LYMPHOBLASTIC LYMPHOMA/LEUKAEMIA
     Dosage: 750 MG/M2, INTRAVENOUS (NOT OTHERWISE SPECIFIED)
     Route: 042
  4. VINCRISTINE  SULFATE (VINCRISTINE SULFATE) (VINCRISTINE SULFATE) [Suspect]
     Indication: PRECURSOR T-LYMPHOBLASTIC LYMPHOMA/LEUKAEMIA
     Dosage: 1 MG/M2, INTRAVENOUS (NOT OTHERWISE SPECIFIED)
     Route: 042
  5. METHOTREXATE (METHOTREXATE) (METHOTREXATE) [Suspect]
     Indication: PRECURSOR T-LYMPHOBLASTIC LYMPHOMA/LEUKAEMIA
     Route: 037
  6. THIOGUANINE (THIGGUANINE) (THIOGUANINE) [Suspect]
     Indication: PRECURSOR T-LYMPHOBLASTIC LYMPHOMA/LEUKAEMIA
     Dosage: 150 MG/M2, INTRAVENOUS (NOT OTHERWISE SPECIFIED)
     Route: 042
  7. L-ASPARAGINASE (ASPARAGINASE) (ASPARAGINASE) [Suspect]
     Indication: PRECURSOR T-LYMPHOBLASTIC LYMPHOMA/LEUKAEMIA
     Dosage: 10000 IU, INTRAVENOUS (NOT OTHERWISE SPECIFIED)
     Route: 042
  8. PREDNISONE (PREDNISONE) (PREDNISONE) [Suspect]
     Indication: PRECURSOR T-LYMPHOBLASTIC LYMPHOMA/LEUKAEMIA
     Route: 037
  9. DOXORUBICIN (DOXORUBICIN) (DOXORUBICIN) [Suspect]
     Indication: PRECURSOR T-LYMPHOBLASTIC LYMPHOMA/LEUKAEMIA
     Dosage: 30 MG/M2, INTRAVENOUS (NOT OTHERWISE SPECIFIED)
     Route: 042
  10. MERCAPTOPURINE (MERCAPTOPURINE) (MERCAPTOPURINE) [Suspect]
     Indication: PRECURSOR T-LYMPHOBLASTIC LYMPHOMA/LEUKAEMIA
     Route: 048
  11. DAUNORUBICIN (DAUNORUBICIN) (DAUNORUBICIN) [Suspect]
     Indication: PRECURSOR T-LYMPHOBLASTIC LYMPHOMA/LEUKAEMIA
     Dosage: 50 MG/M2, INTRAVENOUS (NOT OTHERWISE SPECIFIED)
     Route: 042

REACTIONS (2)
  - Febrile neutropenia [None]
  - Haematotoxicity [None]
